FAERS Safety Report 19971570 (Version 1)
Quarter: 2021Q4

REPORT INFORMATION
  Report Type: Spontaneous
  Country: DE (occurrence: DE)
  Receive Date: 20211019
  Receipt Date: 20211019
  Transmission Date: 20220304
  Serious: Yes (Other)
  Sender: FDA-Public Use
  Company Number: 2021A773827

PATIENT
  Age: 53 Year
  Sex: Female
  Weight: 101 kg

DRUGS (3)
  1. DAPAGLIFLOZIN [Suspect]
     Active Substance: DAPAGLIFLOZIN
     Indication: Diabetes mellitus
     Route: 048
     Dates: start: 2018
  2. CANDESARTAN [Concomitant]
     Active Substance: CANDESARTAN
     Route: 065
  3. LEVOTHYROXINE [Concomitant]
     Active Substance: LEVOTHYROXINE
     Route: 065

REACTIONS (4)
  - Hypothyroidism [Unknown]
  - Abdominal discomfort [Unknown]
  - Ill-defined disorder [Unknown]
  - Product adhesion issue [Unknown]
